FAERS Safety Report 4943962-6 (Version None)
Quarter: 2006Q1

REPORT INFORMATION
  Report Type: 
  Country: None (occurrence: None)
  Receive Date: 20060313
  Receipt Date: 20060313
  Transmission Date: 20060701
  Serious: Yes (Death)
  Sender: FDA-Public Use
  Company Number: None

PATIENT
  Sex: Male
  Weight: 81.2 kg

DRUGS (2)
  1. INFLIXIMAB [Suspect]
     Indication: CROHN'S DISEASE
     Dosage: -WEIGH BASED- Q 6 WEEKS IV DRIP
     Route: 042
     Dates: start: 20010101
  2. PREDNISONE 50MG TAB [Suspect]
     Indication: CROHN'S DISEASE
     Dosage: 50 MG DAILY PO
     Route: 048

REACTIONS (2)
  - CEREBRAL HAEMORRHAGE [None]
  - MUCORMYCOSIS [None]
